FAERS Safety Report 5119197-3 (Version None)
Quarter: 2006Q4

REPORT INFORMATION
  Report Type: 
  Country: None (occurrence: None)
  Receive Date: 20061003
  Receipt Date: 20060928
  Transmission Date: 20070319
  Serious: Yes (Hospitalization)
  Sender: FDA-Public Use
  Company Number: 2006UW18859

PATIENT
  Age: 42 Year
  Sex: Male

DRUGS (2)
  1. TOPROL-XL [Suspect]
     Route: 048
  2. BENAZEPRIL HYDROCHLORIDE [Suspect]

REACTIONS (1)
  - PERICARDIAL EFFUSION [None]
